FAERS Safety Report 5130073-2 (Version None)
Quarter: 2006Q4

REPORT INFORMATION
  Report Type: 
  Country: None (occurrence: None)
  Receive Date: 20061013
  Receipt Date: 20060925
  Transmission Date: 20070319
  Serious: Yes (Other)
  Sender: FDA-Public Use
  Company Number: FR200608004979

PATIENT
  Age: 83 Year
  Sex: Female

DRUGS (4)
  1. FORTEO [Suspect]
     Indication: OSTEOPOROSIS
     Dosage: 20 UG, DAILY (1/D), SUBCUTANEOUS
     Route: 058
     Dates: start: 20060506, end: 20060706
  2. FORTEO PEN (FORTEO PEN) PEN, DISPOSABLE [Concomitant]
  3. TRAMADOL HCL [Concomitant]
  4. DEFALGAN   /FRA/ (PARACETAMOL) [Concomitant]

REACTIONS (2)
  - ESCHERICHIA INFECTION [None]
  - RENAL FAILURE [None]
